FAERS Safety Report 24068935 (Version 1)
Quarter: 2024Q3

REPORT INFORMATION
  Report Type: Report from Study
  Country: IT (occurrence: IT)
  Receive Date: 20240710
  Receipt Date: 20240710
  Transmission Date: 20241017
  Serious: No
  Sender: ROCHE
  Company Number: IT-ROCHE-3159178

PATIENT
  Age: 83 Year
  Sex: Female
  Weight: 72.0 kg

DRUGS (11)
  1. ALECTINIB [Suspect]
     Active Substance: ALECTINIB
     Indication: Non-small cell lung cancer
     Route: 048
     Dates: start: 20210811
  2. FOSFOMYCIN TROMETHAMINE [Concomitant]
     Active Substance: FOSFOMYCIN TROMETHAMINE
     Route: 048
     Dates: start: 20220912, end: 20220913
  3. FOSFOMYCIN TROMETHAMINE [Concomitant]
     Active Substance: FOSFOMYCIN TROMETHAMINE
     Route: 048
     Dates: start: 20221017, end: 20221018
  4. TRIADE [Concomitant]
     Indication: Prophylaxis
     Dosage: DOSE WAS UNK UNKNOWN
     Route: 048
  5. ALLOPURINOL [Concomitant]
     Active Substance: ALLOPURINOL
     Indication: Hyperuricaemia
     Route: 048
     Dates: start: 20220912
  6. CLARITHROMYCIN [Concomitant]
     Active Substance: CLARITHROMYCIN
     Indication: Abdominal pain upper
     Route: 048
     Dates: start: 20221112, end: 20221116
  7. CLARITHROMYCIN [Concomitant]
     Active Substance: CLARITHROMYCIN
     Indication: Cough
  8. EDOXABAN TOSYLATE [Concomitant]
     Active Substance: EDOXABAN TOSYLATE
     Indication: Atrial fibrillation
     Route: 048
     Dates: start: 20230421
  9. JARDIANCE [Concomitant]
     Active Substance: EMPAGLIFLOZIN
     Indication: Type 2 diabetes mellitus
     Route: 048
     Dates: start: 20230516
  10. METOPROLOL [Concomitant]
     Active Substance: METOPROLOL
     Indication: Cardiac failure acute
     Route: 048
     Dates: start: 20230420, end: 20230718
  11. METOPROLOL [Concomitant]
     Active Substance: METOPROLOL
     Route: 048
     Dates: start: 20230719

REACTIONS (4)
  - Hypercreatininaemia [Not Recovered/Not Resolved]
  - Urinary tract disorder [Recovered/Resolved]
  - Hyperuricaemia [Recovered/Resolved]
  - White blood cells urine positive [Recovered/Resolved]

NARRATIVE: CASE EVENT DATE: 20220711
